FAERS Safety Report 24590774 (Version 1)
Quarter: 2024Q4

REPORT INFORMATION
  Report Type: Spontaneous
  Country: US (occurrence: US)
  Receive Date: 20241107
  Receipt Date: 20241107
  Transmission Date: 20250115
  Serious: No
  Sender: MERCK
  Company Number: US-009507513-2411USA002498

PATIENT
  Sex: Female

DRUGS (1)
  1. JANUMET [Suspect]
     Active Substance: METFORMIN HYDROCHLORIDE\SITAGLIPTIN PHOSPHATE
     Dosage: STRENGTH 50/1000 (UNITS NOT PROVIDED), 1 TABLET TWICE DAILY
     Route: 048
     Dates: end: 202406

REACTIONS (4)
  - Product dose omission issue [Unknown]
  - Inability to afford medication [Unknown]
  - Insurance issue [Unknown]
  - No adverse event [Unknown]

NARRATIVE: CASE EVENT DATE: 20240601
